FAERS Safety Report 7619139-2 (Version None)
Quarter: 2011Q3

REPORT INFORMATION
  Report Type: 
  Country: None (occurrence: None)
  Receive Date: 20110718
  Receipt Date: 20110715
  Transmission Date: 20111222
  Serious: Yes (Hospitalization)
  Sender: FDA-Public Use
  Company Number: US-B.I. PHARMACEUTICALS,INC./RIDGEFIELD-2011-BP-15513BP

PATIENT
  Age: 81 Year
  Sex: Female

DRUGS (3)
  1. PRADAXA [Suspect]
     Indication: ATRIAL FIBRILLATION
     Dosage: 300 MG
     Route: 048
     Dates: start: 20110301, end: 20110405
  2. CORGARD [Concomitant]
     Dosage: 40 MG
  3. ZOCOR [Concomitant]
     Dosage: 20 MG

REACTIONS (1)
  - TRANSIENT ISCHAEMIC ATTACK [None]
